FAERS Safety Report 25013645 (Version 3)
Quarter: 2025Q2

REPORT INFORMATION
  Report Type: Spontaneous
  Country: CA (occurrence: CA)
  Receive Date: 20250226
  Receipt Date: 20250429
  Transmission Date: 20250716
  Serious: No
  Sender: PFIZER
  Company Number: CA-PFIZER INC-202400186704

PATIENT
  Age: 15 Year
  Sex: Female

DRUGS (3)
  1. ABRILADA [Suspect]
     Active Substance: ADALIMUMAB-AFZB
     Indication: Uveitis
     Route: 058
     Dates: start: 20231117
  2. METHOTREXATE [Concomitant]
     Active Substance: METHOTREXATE
  3. PREDNISONE [Concomitant]
     Active Substance: PREDNISONE

REACTIONS (2)
  - Visual acuity reduced [Unknown]
  - Injection site pain [Recovered/Resolved]
